FAERS Safety Report 21326379 (Version 2)
Quarter: 2023Q1

REPORT INFORMATION
  Report Type: Other
  Country: US (occurrence: None)
  Receive Date: 20220913
  Receipt Date: 20230106
  Transmission Date: 20230417
  Serious: Yes (Death)
  Sender: FDA-Public Use
  Company Number: US-ROCHE-3176941

PATIENT
  Age: 67 Year
  Sex: Male

DRUGS (5)
  1. PULMOZYME [Suspect]
     Active Substance: DORNASE ALFA
     Indication: Infection
     Dosage: NEBULIZE THE CONTENTS OF 1 VIAL(S) EVERY DAY IN THE MORNING
     Route: 065
     Dates: end: 20220721
  2. PULMOZYME [Suspect]
     Active Substance: DORNASE ALFA
     Indication: Bronchiectasis
  3. PULMOZYME [Suspect]
     Active Substance: DORNASE ALFA
     Indication: Chronic sinusitis
  4. PULMOZYME [Suspect]
     Active Substance: DORNASE ALFA
     Indication: Cystic fibrosis
  5. PULMOZYME [Suspect]
     Active Substance: DORNASE ALFA
     Indication: Natural killer-cell lymphoblastic lymphoma

REACTIONS (1)
  - Death [Fatal]
